FAERS Safety Report 4407639-8 (Version None)
Quarter: 2004Q3

REPORT INFORMATION
  Report Type: 
  Country: None (occurrence: None)
  Receive Date: 20040721
  Receipt Date: 20040708
  Transmission Date: 20050211
  Serious: No
  Sender: FDA-Public Use
  Company Number: 04H-167-0266606-00

PATIENT
  Sex: 0

DRUGS (5)
  1. HEPARIN SODIUM [Suspect]
     Indication: THROMBOSIS PROPHYLAXIS
     Dosage: 5000 UNIT, ONCE, INTRAVENOUS JUST BEFORE VASCULAR
     Route: 042
  2. CYCLOSPORINE [Concomitant]
  3. METHYLPREDNISOLONE [Concomitant]
  4. PREDNISONE [Concomitant]
  5. AZATHOPRINE [Concomitant]

REACTIONS (2)
  - PERIRENAL HAEMATOMA [None]
  - RENAL VEIN THROMBOSIS [None]
